FAERS Safety Report 7591476-X (Version None)
Quarter: 2011Q3

REPORT INFORMATION
  Report Type: 
  Country: None (occurrence: None)
  Receive Date: 20110701
  Receipt Date: 20110701
  Transmission Date: 20111222
  Serious: No
  Sender: FDA-Public Use
  Company Number: None

PATIENT
  Age: 58 Year
  Sex: Female
  Weight: 87.5442 kg

DRUGS (1)
  1. SIMVASTATIN [Suspect]
     Indication: BLOOD CHOLESTEROL INCREASED
     Dosage: 1 AT BED TIME
     Dates: start: 20101001, end: 20110623

REACTIONS (3)
  - PAIN [None]
  - PRODUCT QUALITY ISSUE [None]
  - ASTHENIA [None]
